FAERS Safety Report 16779482 (Version 2)
Quarter: 2019Q3

REPORT INFORMATION
  Report Type: Spontaneous
  Country: US (occurrence: US)
  Receive Date: 20190906
  Receipt Date: 20190916
  Transmission Date: 20191005
  Serious: Yes (Other)
  Sender: FDA-Public Use
  Company Number: US-SA-2019SA248837

PATIENT
  Age: 68 Year
  Sex: Female

DRUGS (4)
  1. FABRAZYME [Suspect]
     Active Substance: AGALSIDASE BETA
     Dosage: UNK
     Dates: start: 2017
  2. FABRAZYME [Suspect]
     Active Substance: AGALSIDASE BETA
     Indication: FABRY^S DISEASE
     Dosage: UNK, UNK
     Route: 042
     Dates: start: 2016
  3. PLAQUENIL [Suspect]
     Active Substance: HYDROXYCHLOROQUINE SULFATE
     Indication: AUTOIMMUNE DISORDER
     Dosage: UNK, UNK
     Dates: start: 200601, end: 201907
  4. FABRAZYME [Suspect]
     Active Substance: AGALSIDASE BETA
     Dosage: 110 U, FREQUENCY: Q2
     Route: 042
     Dates: start: 20170510

REACTIONS (2)
  - Skin cancer [Unknown]
  - Renal impairment [Unknown]

NARRATIVE: CASE EVENT DATE: 20190821
